FAERS Safety Report 8097538-5 (Version None)
Quarter: 2012Q1

REPORT INFORMATION
  Report Type: 
  Country: None (occurrence: None)
  Receive Date: 20120131
  Receipt Date: 20120123
  Transmission Date: 20120608
  Serious: No
  Sender: FDA-Public Use
  Company Number: US-PFIZER INC-2011303144

PATIENT
  Sex: Male

DRUGS (3)
  1. OXYCODONE HCL [Suspect]
     Dosage: UNK
  2. TAPENTADOL [Suspect]
     Dosage: UNK
  3. VICODIN [Suspect]
     Indication: PAIN
     Dosage: EVERY 6HRS PRN
     Route: 048
     Dates: start: 20090420, end: 20090421

REACTIONS (4)
  - PRURITUS [None]
  - DYSPNOEA [None]
  - RASH [None]
  - DRUG HYPERSENSITIVITY [None]
